FAERS Safety Report 23847714 (Version 1)
Quarter: 2024Q2

REPORT INFORMATION
  Report Type: Spontaneous
  Country: US (occurrence: US)
  Receive Date: 20240513
  Receipt Date: 20240513
  Transmission Date: 20240716
  Serious: No
  Sender: FDA-Public Use
  Company Number: US-CIPLA LTD.-2023US02355

PATIENT

DRUGS (3)
  1. ALBUTEROL [Suspect]
     Active Substance: ALBUTEROL
     Indication: Sarcoidosis
     Dosage: 180 MICROGRAM (2 PUFFS), PRN
     Dates: start: 2022
  2. ALBUTEROL [Suspect]
     Active Substance: ALBUTEROL
     Dosage: 180 MICROGRAM (2 PUFFS), PRN
     Dates: start: 202304
  3. PREDNISONE [Concomitant]
     Active Substance: PREDNISONE
     Indication: Lung disorder
     Dosage: UNK
     Route: 048
     Dates: start: 2022

REACTIONS (2)
  - Off label use [Unknown]
  - Incorrect dose administered by device [Unknown]

NARRATIVE: CASE EVENT DATE: 20220101
